FAERS Safety Report 11876471 (Version 1)
Quarter: 2015Q4

REPORT INFORMATION
  Report Type: Report from Study
  Country: US (occurrence: US)
  Receive Date: 20151229
  Receipt Date: 20151229
  Transmission Date: 20160305
  Serious: Yes (Hospitalization, Other)
  Sender: FDA-Public Use
  Company Number: US-BAXTER-2015BAX069623

PATIENT
  Age: 18 Year
  Sex: Male
  Weight: 109 kg

DRUGS (23)
  1. CYCLOPHOSPHAMIDE FOR INJECTION, USP [Suspect]
     Active Substance: CYCLOPHOSPHAMIDE
     Dosage: COURSE B, OVER 15-30 MINUTES ON DAYS 1-5 (CYCLE 21 DAYS)
     Route: 042
     Dates: start: 20150929
  2. DEXAMETHASONE. [Suspect]
     Active Substance: DEXAMETHASONE
     Dosage: PROPHASE, CYCLICAL, TWICE DAILY (BID) ON DAYS 3-5
     Route: 048
  3. DEXAMETHASONE. [Suspect]
     Active Substance: DEXAMETHASONE
     Dosage: COURSE A, BID ON DAYS 1-5
     Route: 048
     Dates: start: 20150908
  4. CYCLOPHOSPHAMIDE FOR INJECTION, USP [Suspect]
     Active Substance: CYCLOPHOSPHAMIDE
     Dosage: LAST DOSE PRIOR TO EVENT; COURSE B, OVER 15-30 MINUTES ON DAYS 1-5 (CYCLE 21 DAYS)
     Route: 042
     Dates: start: 20151003
  5. DOXORUBICIN HCL [Suspect]
     Active Substance: DOXORUBICIN HYDROCHLORIDE
     Indication: ANAPLASTIC LARGE CELL LYMPHOMA T- AND NULL-CELL TYPES
     Dosage: LAST DOSE PRIOR TO EVENT; OVER 1-15 MIN ON DAYS 4 AND 5
     Route: 042
     Dates: start: 20151002
  6. METHOTREXATE [Suspect]
     Active Substance: METHOTREXATE
     Dosage: COURSE B,  OVER 3 HOURS ON DAY 1
     Route: 042
     Dates: start: 20150929
  7. CRIZOTINIB [Suspect]
     Active Substance: CRIZOTINIB
     Dosage: AT REDUCED DOSE
     Route: 048
  8. CYCLOPHOSPHAMIDE FOR INJECTION, USP [Suspect]
     Active Substance: CYCLOPHOSPHAMIDE
     Indication: ANAPLASTIC LARGE CELL LYMPHOMA T- AND NULL-CELL TYPES
     Dosage: PROPHASE-5 DAYS, OVER 15-30 MINUTES ON DAYS 1 AND 2
     Route: 042
     Dates: start: 20150903
  9. HYDROCORTISONE ACETATE. [Suspect]
     Active Substance: HYDROCORTISONE ACETATE
     Indication: ANAPLASTIC LARGE CELL LYMPHOMA T- AND NULL-CELL TYPES
     Dosage: PROPHASE, 7.5-12MG ON DAY 1 (AGE BASED DOSING)
     Route: 037
     Dates: start: 20150903, end: 20150903
  10. DOXORUBICIN HCL [Suspect]
     Active Substance: DOXORUBICIN HYDROCHLORIDE
     Dosage: OVER 1-15 MIN ON DAYS 4 AND 5
     Route: 042
     Dates: start: 20151003
  11. DEXAMETHASONE. [Suspect]
     Active Substance: DEXAMETHASONE
     Indication: ANAPLASTIC LARGE CELL LYMPHOMA T- AND NULL-CELL TYPES
     Dosage: PROPHASE, CYCLICAL, ONCE DAILY (QD) ON DAYS 1-2
     Route: 048
     Dates: start: 20150903
  12. IFOSFAMIDE FOR INJECTION [Suspect]
     Active Substance: IFOSFAMIDE
     Dosage: OVER 60 MIN ON DAY1-5, COURSE A; LAST DOSE PRIOR TO EVENT
     Route: 042
     Dates: start: 20150912
  13. VP-16 [Suspect]
     Active Substance: ETOPOSIDE
     Indication: ANAPLASTIC LARGE CELL LYMPHOMA T- AND NULL-CELL TYPES
     Dosage: COURSE A, OVER 2 HOURS ON DAYS 4 AND 5
     Route: 042
     Dates: start: 20150911, end: 20150912
  14. METHOTREXATE [Suspect]
     Active Substance: METHOTREXATE
     Dosage: COURSE A,  OVER 3 HOURS ON DAY 1
     Route: 042
     Dates: start: 20150908
  15. CYTARABINE. [Suspect]
     Active Substance: CYTARABINE
     Indication: ANAPLASTIC LARGE CELL LYMPHOMA T- AND NULL-CELL TYPES
     Dosage: PROPHASE, 15-24 MG ON DAY 1 (AGE BASED DOSING)
     Route: 037
     Dates: start: 20150903
  16. CYTARABINE. [Suspect]
     Active Substance: CYTARABINE
     Dosage: COURSE A, OVER 1-30 MINUTES EVERY 12 HOURS ON DAYS 4 AND 5 (TOTAL 4 DOSES)
     Route: 042
     Dates: start: 20150911
  17. IFOSFAMIDE FOR INJECTION [Suspect]
     Active Substance: IFOSFAMIDE
     Indication: ANAPLASTIC LARGE CELL LYMPHOMA T- AND NULL-CELL TYPES
     Dosage: OVER 60 MIN ON DAY1-5, COURSE A
     Route: 042
     Dates: start: 20150908
  18. CRIZOTINIB [Suspect]
     Active Substance: CRIZOTINIB
     Indication: ANAPLASTIC LARGE CELL LYMPHOMA T- AND NULL-CELL TYPES
     Dosage: COURSE A, BID ON DAYS 1-21, 250 MG TWICE DAILY
     Route: 048
     Dates: start: 20150908
  19. CRIZOTINIB [Suspect]
     Active Substance: CRIZOTINIB
     Dosage: COURSE B, BID ON DAYS 1-21
     Route: 048
  20. METHOTREXATE [Suspect]
     Active Substance: METHOTREXATE
     Indication: ANAPLASTIC LARGE CELL LYMPHOMA T- AND NULL-CELL TYPES
     Dosage: PROPHASE, 7.5-12MG ON DAY 1 (AGE BASED DOSING)
     Route: 037
     Dates: start: 20150903
  21. CYTARABINE. [Suspect]
     Active Substance: CYTARABINE
     Dosage: COURSE A, LAST DOSE BEFORE THE EVENTS
     Route: 042
     Dates: start: 20150913
  22. CRIZOTINIB [Suspect]
     Active Substance: CRIZOTINIB
     Dosage: COURSE B,
     Route: 048
     Dates: start: 20151010, end: 20151013
  23. DEXAMETHASONE. [Suspect]
     Active Substance: DEXAMETHASONE
     Dosage: COURSE B, BID ON DAYS 1-5
     Route: 048
     Dates: start: 20150929, end: 20151003

REACTIONS (7)
  - Pleural effusion [Unknown]
  - Febrile neutropenia [Unknown]
  - Hypokalaemia [Recovered/Resolved]
  - Pneumonia [Recovered/Resolved]
  - Clostridium difficile infection [Recovered/Resolved]
  - Stomatitis [Recovered/Resolved]
  - Enterocolitis bacterial [Recovered/Resolved]

NARRATIVE: CASE EVENT DATE: 20151007
